FAERS Safety Report 25182544 (Version 1)
Quarter: 2025Q2

REPORT INFORMATION
  Report Type: Spontaneous
  Country: US (occurrence: US)
  Receive Date: 20250410
  Receipt Date: 20250410
  Transmission Date: 20250717
  Serious: No
  Sender: OPTINOSE INC
  Company Number: US-OptiNose US, Inc-2024OPT000092

PATIENT
  Age: 59 Year
  Sex: Male

DRUGS (2)
  1. XHANCE [Suspect]
     Active Substance: FLUTICASONE PROPIONATE
     Indication: Off label use
     Route: 045
     Dates: start: 20240401, end: 20240615
  2. VITAMINS [Concomitant]
     Active Substance: VITAMINS
     Indication: Product used for unknown indication

REACTIONS (10)
  - Discomfort [Unknown]
  - Feeling abnormal [Unknown]
  - Pain [Unknown]
  - Influenza like illness [Unknown]
  - Facial pain [Unknown]
  - Pyrexia [Unknown]
  - Dizziness [Unknown]
  - Nasal congestion [Unknown]
  - Sinusitis [Recovered/Resolved]
  - Off label use [Unknown]

NARRATIVE: CASE EVENT DATE: 20240601
